FAERS Safety Report 10017806 (Version 3)
Quarter: 2014Q3

REPORT INFORMATION
  Report Type: Spontaneous
  Country: JP (occurrence: JP)
  Receive Date: 20140318
  Receipt Date: 20140708
  Transmission Date: 20150326
  Serious: Yes (Death, Other)
  Sender: FDA-Public Use
  Company Number: JP-MALLINCKRODT-T201401566

PATIENT
  Age: 54 Year
  Sex: Male
  Weight: 65 kg

DRUGS (26)
  1. METHADONE [Suspect]
     Active Substance: METHADONE HYDROCHLORIDE
     Dosage: 15 MG, (45 MG DAILY DOSE)
     Route: 048
     Dates: start: 20131203, end: 20131209
  2. BENZALIN [Concomitant]
     Active Substance: NITRAZEPAM
     Dosage: UNK
     Route: 048
     Dates: end: 20131215
  3. GASMOTIN [Concomitant]
     Active Substance: MOSAPRIDE CITRATE
     Dosage: 3 MG, UNK
     Route: 048
     Dates: end: 20140107
  4. GARENOXACIN MESILATE MONOHYDRATE [Concomitant]
     Dosage: 400 MG, UNK
     Route: 048
     Dates: start: 20131226, end: 20140106
  5. METHADONE [Suspect]
     Active Substance: METHADONE HYDROCHLORIDE
     Dosage: 10 MG, (20 MG DAILY DOSE)
     Route: 048
     Dates: start: 20131214, end: 20131218
  6. METHADONE [Suspect]
     Active Substance: METHADONE HYDROCHLORIDE
     Dosage: 15 MG, (15 MG DAILY DOSE)
     Route: 048
     Dates: start: 20131230, end: 20140101
  7. SORBITOL LACTATED RINGER^S [Concomitant]
     Dosage: 24 ML, UNK
     Route: 048
     Dates: end: 20140107
  8. METHADONE [Suspect]
     Active Substance: METHADONE HYDROCHLORIDE
     Indication: CANCER PAIN
     Dosage: 10 MG, (DAILY DOSE 30 MG)
     Route: 048
     Dates: start: 20131126, end: 20131203
  9. CALANOL [Concomitant]
     Dosage: 1000 MG, UNK
     Dates: end: 20131215
  10. VEMAS [Concomitant]
     Dosage: 6 DF
     Route: 048
     Dates: end: 20140107
  11. METHADONE [Suspect]
     Active Substance: METHADONE HYDROCHLORIDE
     Dosage: 10 MG, (30 MG DAILY DOSE)
     Route: 048
     Dates: start: 20131210, end: 20131213
  12. METHADONE [Suspect]
     Active Substance: METHADONE HYDROCHLORIDE
     Dosage: 5 MG, (5 MG DAILY DOSE)
     Route: 048
     Dates: start: 20140102, end: 20140106
  13. PURSENNID [Concomitant]
     Active Substance: SENNOSIDES A AND B CALCIUM
     Dosage: 12 MG, UNK
     Route: 048
     Dates: end: 20140107
  14. ROZEREM [Concomitant]
     Active Substance: RAMELTEON
     Dosage: 8 MG, UNK
     Route: 048
     Dates: start: 20131216, end: 20131226
  15. METHADONE [Suspect]
     Active Substance: METHADONE HYDROCHLORIDE
     Dosage: 5 MG, (15 MG DAILY DOSE)
     Route: 048
     Dates: start: 20131219, end: 20131225
  16. METHADONE [Suspect]
     Active Substance: METHADONE HYDROCHLORIDE
     Dosage: 5 MG, (10 MG DAILY DOSE)
     Route: 048
     Dates: start: 20131226, end: 20131229
  17. TAKEPRON [Concomitant]
     Active Substance: LANSOPRAZOLE
     Dosage: 15 MG, UNK
     Route: 048
     Dates: end: 20140107
  18. REMERON [Concomitant]
     Active Substance: MIRTAZAPINE
     Dosage: 15 MG, UNK
     Route: 048
     Dates: end: 20140107
  19. OXINORM [Concomitant]
     Active Substance: OXYCODONE HYDROCHLORIDE
     Dosage: 20 MG, UNK
     Dates: start: 20131125
  20. VOLTAREN [Concomitant]
     Active Substance: DICLOFENAC SODIUM
     Dosage: UNK
     Route: 048
     Dates: end: 20140107
  21. FERROMIA [Concomitant]
     Active Substance: FERROUS CITRATE
     Dosage: 50 MG, UNK
     Route: 048
     Dates: end: 20140107
  22. UBRETID [Concomitant]
     Active Substance: DISTIGMINE BROMIDE
     Dosage: 5 UNK, UNK
     Route: 048
     Dates: end: 20140107
  23. PROMAC [Concomitant]
     Active Substance: NITROFURANTOIN
     Dosage: 150 MG, UNK
     Route: 048
     Dates: start: 20131215, end: 20140118
  24. MAGMITT [Concomitant]
     Active Substance: MAGNESIUM OXIDE
     Dosage: 3 MG, UNK
     Route: 048
     Dates: end: 20140107
  25. RINDERON V [Concomitant]
     Active Substance: BETAMETHASONE VALERATE
     Dosage: UNK
     Route: 061
     Dates: start: 20131205, end: 20140107
  26. OXYCONTIN [Concomitant]
     Active Substance: OXYCODONE HYDROCHLORIDE

REACTIONS (4)
  - Somnolence [Unknown]
  - Dysgeusia [Not Recovered/Not Resolved]
  - Pneumonia aspiration [Not Recovered/Not Resolved]
  - Condition aggravated [Fatal]

NARRATIVE: CASE EVENT DATE: 20131210
